FAERS Safety Report 11039741 (Version 2)
Quarter: 2015Q2

REPORT INFORMATION
  Report Type: Report from Study
  Country: JP (occurrence: JP)
  Receive Date: 20150416
  Receipt Date: 20150424
  Transmission Date: 20150821
  Serious: Yes (Death, Life-Threatening)
  Sender: FDA-Public Use
  Company Number: JP-TEVA-550413USA

PATIENT
  Age: 25 Year
  Sex: Male
  Weight: 77 kg

DRUGS (7)
  1. PIALE [Concomitant]
     Route: 048
     Dates: start: 20140714, end: 20150316
  2. GALZIN [Suspect]
     Active Substance: ZINC ACETATE
     Indication: HEPATO-LENTICULAR DEGENERATION
     Dosage: 100 MILLIGRAM DAILY;
     Route: 048
     Dates: start: 20140731, end: 20150316
  3. METALCAPTASE [Concomitant]
     Active Substance: PENICILLAMINE
     Indication: HEPATO-LENTICULAR DEGENERATION
     Dosage: 300 MILLIGRAM DAILY;
     Route: 048
     Dates: start: 20140718, end: 20150316
  4. URSO [Concomitant]
     Active Substance: URSODIOL
     Indication: HEPATO-LENTICULAR DEGENERATION
     Dosage: 900 MILLIGRAM DAILY;
     Route: 048
     Dates: start: 20140714, end: 20150316
  5. ALDACTONE [Concomitant]
     Active Substance: SPIRONOLACTONE
     Indication: HEPATO-LENTICULAR DEGENERATION
     Dosage: 25 MILLIGRAM DAILY;
     Route: 048
     Dates: start: 20140714, end: 20150316
  6. AMINOLEBAN EN [Concomitant]
     Active Substance: UNSPECIFIED INGREDIENT
     Indication: HEPATIC FAILURE
     Route: 048
     Dates: start: 20140714, end: 20150316
  7. FUROSEMIDE. [Concomitant]
     Active Substance: FUROSEMIDE
     Dosage: 20 MILLIGRAM DAILY;
     Route: 048
     Dates: start: 20140714, end: 20150316

REACTIONS (1)
  - Hepatic failure [Fatal]

NARRATIVE: CASE EVENT DATE: 20150316
